FAERS Safety Report 23236522 (Version 2)
Quarter: 2024Q1

REPORT INFORMATION
  Report Type: Report from Study
  Country: US (occurrence: US)
  Receive Date: 20231128
  Receipt Date: 20240104
  Transmission Date: 20240409
  Serious: No
  Sender: FDA-Public Use
  Company Number: US-002147023-NVSC2023US252697

PATIENT
  Sex: Male

DRUGS (1)
  1. ENTRESTO [Suspect]
     Active Substance: SACUBITRIL\VALSARTAN
     Indication: Product used for unknown indication
     Dosage: 49/51 MG
     Route: 065

REACTIONS (6)
  - Weight decreased [Unknown]
  - Arthropathy [Unknown]
  - Blood pressure decreased [Unknown]
  - Lip swelling [Unknown]
  - Urticaria [Unknown]
  - Cardiac disorder [Unknown]
